FAERS Safety Report 9245903 (Version 2)
Quarter: 2013Q2

REPORT INFORMATION
  Report Type: Spontaneous
  Country: US (occurrence: US)
  Receive Date: 20130422
  Receipt Date: 20130426
  Transmission Date: 20140414
  Serious: Yes (Other)
  Sender: FDA-Public Use
  Company Number: US-BRISTOL-MYERS SQUIBB COMPANY-18711515

PATIENT
  Age: 86 Year
  Sex: Male

DRUGS (6)
  1. ELIQUIS [Suspect]
     Indication: ATRIAL FIBRILLATION
     Route: 048
     Dates: start: 20130213, end: 20130416
  2. WARFARIN SODIUM [Suspect]
  3. ZETIA [Suspect]
  4. DULCOLAX [Suspect]
  5. AMIODARONE [Suspect]
     Indication: CARDIOVASCULAR DISORDER
  6. MULTIVITAMIN [Suspect]

REACTIONS (2)
  - Cardioversion [Unknown]
  - Pain in extremity [Recovered/Resolved]
